FAERS Safety Report 10633199 (Version 1)
Quarter: 2014Q4

REPORT INFORMATION
  Report Type: Spontaneous
  Country: AT (occurrence: None)
  Receive Date: 20141203
  Receipt Date: 20141203
  Transmission Date: 20150529
  Serious: Yes (Hospitalization, Other)
  Sender: FDA-Public Use
  Company Number: 2014-20827

PATIENT
  Age: 65 Year
  Sex: Male
  Weight: 70 kg

DRUGS (17)
  1. VEGF TRAP-EYE OR LASER TREATMENT (CODE NOT BROKEN) [Suspect]
     Active Substance: AFLIBERCEPT
     Indication: DIABETIC RETINAL OEDEMA
     Dosage: PLACEBO: VEGF TRAP Q1MON
     Route: 031
     Dates: start: 20111123
  2. RANIBIZUMAB (RANIBIZUMAB) [Concomitant]
  3. MARCOUMAR (PHENPROCOUMON) [Concomitant]
     Active Substance: PHENPROCOUMON
  4. LUCENTIS (RANIBIZUMAB) [Concomitant]
  5. NOVOMIX [INSULIN ASPART] (INSULIN ASPART) [Concomitant]
  6. METFORMIN [Concomitant]
     Active Substance: METFORMIN HYDROCHLORIDE
  7. NEO-SYNEPHRINE OPHTHALMIC (PHENYLEPHRINE HYDROCHLORIDE) [Concomitant]
  8. METHOCEL [HYPEROMELLOSE] (HYPROMELLOSE) [Concomitant]
  9. BETAISODONA (POVIDONE-IODINE) [Concomitant]
  10. ACUDEX (DEXAMETHASONE, TOBRAMYCIN) [Concomitant]
  11. CEFIXIME. [Concomitant]
     Active Substance: CEFIXIME
  12. ACC AKUT (ACETYLCYSTEINE) [Concomitant]
  13. FLOXAL (OFLOXACIN) [Concomitant]
  14. ZIENAM (CILASTATIN SODIUM, IMIPENEM) [Concomitant]
  15. LANTUS [Concomitant]
     Active Substance: INSULIN GLARGINE
  16. TROPICAMID [Concomitant]
  17. FLUORESZEIN (FLUORESCEIN SODIUM) [Concomitant]

REACTIONS (5)
  - Retinal detachment [None]
  - Visual acuity tests abnormal [None]
  - Retinopathy proliferative [None]
  - Endophthalmitis [None]
  - Cataract [None]

NARRATIVE: CASE EVENT DATE: 20130923
